FAERS Safety Report 11777497 (Version 2)
Quarter: 2015Q4

REPORT INFORMATION
  Report Type: Report from Study
  Country: TH (occurrence: TH)
  Receive Date: 20151125
  Receipt Date: 20151203
  Transmission Date: 20160304
  Serious: Yes (Hospitalization)
  Sender: FDA-Public Use
  Company Number: TH-TEVA-610205ISR

PATIENT
  Age: 73 Year
  Sex: Male

DRUGS (4)
  1. TRAMADOL. [Concomitant]
     Active Substance: TRAMADOL
     Indication: PAIN
     Dosage: 50 UNKNOWN DAILY;
     Route: 048
     Dates: start: 20141218
  2. CODEPECT [Concomitant]
     Indication: COUGH
     Route: 048
     Dates: start: 20150727
  3. CUSTIRSEN [Suspect]
     Active Substance: CUSTIRSEN
     Indication: NON-SMALL CELL LUNG CANCER
     Dosage: 640 MG, DAY 1, 8, 15 OF A 21 DAY CYCLE
     Route: 042
     Dates: start: 20151026
  4. DOCETAXEL. [Suspect]
     Active Substance: DOCETAXEL
     Indication: NON-SMALL CELL LUNG CANCER
     Dosage: 75 MG/M2, 110 MG, DAY 1 OF A 21 DAY CYCLE
     Route: 042
     Dates: start: 20151103

REACTIONS (2)
  - Diarrhoea [Unknown]
  - Haematemesis [Unknown]

NARRATIVE: CASE EVENT DATE: 20151109
